FAERS Safety Report 22317492 (Version 1)
Quarter: 2023Q2

REPORT INFORMATION
  Report Type: Spontaneous
  Country: AU (occurrence: AU)
  Receive Date: 20230515
  Receipt Date: 20230515
  Transmission Date: 20230722
  Serious: Yes (Death, Other)
  Sender: FDA-Public Use
  Company Number: AU-BRISTOL-MYERS SQUIBB COMPANY-2023-067438

PATIENT
  Age: 85 Year
  Sex: Male
  Weight: 68 kg

DRUGS (6)
  1. AZACITIDINE [Suspect]
     Active Substance: AZACITIDINE
     Indication: Acute myeloid leukaemia
     Dosage: 131 MILLIGRAM
     Route: 042
     Dates: start: 20210628, end: 20210628
  2. BGB-11417 [Suspect]
     Active Substance: BGB-11417
     Indication: Acute myeloid leukaemia
     Dosage: 10 MILLIGRAM, TABLET, FILM COATED
     Route: 048
     Dates: start: 20210629, end: 20210629
  3. RAMIPRIL [Concomitant]
     Active Substance: RAMIPRIL
     Indication: Hypertension
     Dosage: FREQUENCY TEXT: NOT PROVIDED
     Dates: start: 2010
  4. ESOMEPRAZOLE MAGNESIUM [Concomitant]
     Active Substance: ESOMEPRAZOLE MAGNESIUM
     Indication: Gastrooesophageal reflux disease
     Dosage: FREQUENCY TEXT: NOT PROVIDED
     Dates: start: 2002
  5. ALLOPURINOL [Concomitant]
     Active Substance: ALLOPURINOL
     Indication: Tumour lysis syndrome
     Dosage: FREQUENCY TEXT: NOT PROVIDED
     Route: 048
     Dates: start: 20210624
  6. AMPHOTERICIN B [Concomitant]
     Active Substance: AMPHOTERICIN B
     Indication: Antifungal prophylaxis
     Dosage: FREQUENCY TEXT: NOT PROVIDED
     Dates: start: 20210628, end: 20210702

REACTIONS (1)
  - Death [Fatal]

NARRATIVE: CASE EVENT DATE: 20210905
